FAERS Safety Report 8251781-0 (Version None)
Quarter: 2012Q2

REPORT INFORMATION
  Report Type: 
  Country: None (occurrence: None)
  Receive Date: 20120402
  Receipt Date: 20120326
  Transmission Date: 20120825
  Serious: Yes (Hospitalization, Other)
  Sender: FDA-Public Use
  Company Number: US-TEVA-330048USA

PATIENT
  Sex: Male

DRUGS (3)
  1. CLOZAPINE [Suspect]
     Indication: SCHIZOPHRENIA
     Route: 048
  2. LITHIUM CARBONATE [Concomitant]
  3. VALPROATE SODIUM [Concomitant]

REACTIONS (2)
  - MYOCARDITIS [None]
  - INFLUENZA LIKE ILLNESS [None]
